FAERS Safety Report 8965338 (Version 1)
Quarter: 2012Q4

REPORT INFORMATION
  Report Type: 
  Country: US (occurrence: US)
  Receive Date: 20121213
  Receipt Date: 20121213
  Transmission Date: 20130627
  Serious: No
  Sender: FDA-Public Use
  Company Number: US-VERTEX PHARMACEUTICALS INC.-2012-025896

PATIENT
  Age: 57 Year
  Sex: Male

DRUGS (12)
  1. VX-950 (TELAPREVIR) [Suspect]
     Indication: HEPATITIS C
     Dosage: 750 mg, tid
     Route: 048
  2. PEGASYS [Concomitant]
     Indication: HEPATITIS C
  3. RIBASPHERE [Concomitant]
     Indication: HEPATITIS C
  4. CLONAZEPAM [Concomitant]
  5. PREPARATIO H GEL [Concomitant]
  6. VITAMIN E                          /00110501/ [Concomitant]
  7. FISH OIL [Concomitant]
  8. MULTIVITAMIN                       /00097801/ [Concomitant]
  9. VITAMIN D /00107901/ [Concomitant]
  10. ALBUTEROL                          /00139501/ [Concomitant]
  11. FLOVENT [Concomitant]
  12. TYLENOL /00020001/ [Concomitant]

REACTIONS (5)
  - Upper respiratory tract infection [Unknown]
  - Herpes simplex [Unknown]
  - Insomnia [Unknown]
  - Fatigue [Unknown]
  - Haemorrhoids [Unknown]
